FAERS Safety Report 5908398-X (Version None)
Quarter: 2008Q4

REPORT INFORMATION
  Report Type: 
  Country: None (occurrence: None)
  Receive Date: 20081006
  Receipt Date: 20080929
  Transmission Date: 20090506
  Serious: Yes (Other)
  Sender: FDA-Public Use
  Company Number: SE-JNJFOC-20081000003

PATIENT
  Age: 67 Year
  Sex: Female

DRUGS (1)
  1. PEVARYL [Suspect]
     Indication: FUNGAL INFECTION
     Route: 003

REACTIONS (1)
  - HAEMORRHAGE [None]
